FAERS Safety Report 10021665 (Version 3)
Quarter: 2014Q2

REPORT INFORMATION
  Report Type: Spontaneous
  Country: US (occurrence: US)
  Receive Date: 20140319
  Receipt Date: 20140506
  Transmission Date: 20141212
  Serious: Yes (Hospitalization, Other)
  Sender: FDA-Public Use
  Company Number: US-BAXTER-2014BAX013428

PATIENT
  Age: 79 Year
  Sex: Female

DRUGS (3)
  1. DIANEAL LOW CALCIUM [Suspect]
     Indication: PERITONEAL DIALYSIS
     Route: 033
     Dates: start: 20110105
  2. DIANEAL LOW CALCIUM [Suspect]
     Indication: PERITONEAL DIALYSIS
     Route: 033
     Dates: start: 20110105
  3. PROCRIT [Concomitant]
     Indication: ANAEMIA
     Route: 065

REACTIONS (6)
  - Oral fungal infection [Recovered/Resolved]
  - Gastric infection [Recovering/Resolving]
  - Peritonitis [Recovered/Resolved]
  - Decreased appetite [Recovering/Resolving]
  - Constipation [Recovered/Resolved]
  - Abdominal distension [Unknown]
